FAERS Safety Report 7417070-9 (Version None)
Quarter: 2011Q2

REPORT INFORMATION
  Report Type: 
  Country: None (occurrence: None)
  Receive Date: 20110415
  Receipt Date: 20110325
  Transmission Date: 20111010
  Serious: Yes (Other)
  Sender: FDA-Public Use
  Company Number: US-BAYER-200935581NA

PATIENT
  Age: 62 Year
  Sex: Male
  Weight: 87.982 kg

DRUGS (22)
  1. PREVACID [Concomitant]
     Indication: GASTROOESOPHAGEAL REFLUX DISEASE
     Dosage: 30 MG, QD
     Route: 048
  2. NORVIR [Concomitant]
     Indication: HIV TEST
     Dosage: 100 MG, QD
  3. REYATAZ [Concomitant]
     Indication: HIV TEST
     Dosage: 150 MG, BID
     Route: 048
  4. IMMUNE GLOBULIN NOS [Concomitant]
     Indication: THROMBOCYTOPENIC PURPURA
  5. ACETYLSALICYLIC ACID SRT [Concomitant]
     Dosage: 325 MG, QD
  6. EMTRIVA [Concomitant]
     Indication: HIV TEST
     Dosage: 200 MG, QD
     Route: 048
  7. NITROGLYCERIN [Concomitant]
     Dosage: 2.5 INCHES, TID
     Route: 061
  8. IMMUNE GLOBULIN NOS [Concomitant]
     Indication: HIV TEST
     Dosage: 400 MG/KG, QD
     Route: 042
     Dates: start: 20050322, end: 20050328
  9. NITROGLYCERIN [Concomitant]
     Indication: CHEST PAIN
     Dosage: 0.5 MG, REPEAT IN FIVE MINUTES
     Route: 060
  10. HEPARIN [Concomitant]
     Dosage: 14 U/KG , Q1HR
     Route: 042
  11. LIPITOR [Concomitant]
     Indication: HYPERLIPIDAEMIA
     Dosage: 80 MG, QD, PM
     Route: 048
  12. SEPTRA DS [Concomitant]
     Indication: PROPHYLAXIS
     Dosage: 1 TAB, TIW
     Route: 048
  13. DANAZOL [Concomitant]
     Indication: HIV TEST
     Dosage: 200 MG, TID
     Route: 048
  14. LIPITOR [Concomitant]
     Dosage: 40 MG, UNK
  15. VIREAD [Concomitant]
     Indication: HIV TEST
     Dosage: 300 MG, QD
     Route: 048
  16. LISINOPRIL [Concomitant]
     Indication: CARDIAC DISORDER
     Dosage: 20 MG, QD
     Route: 048
  17. INSULIN [Concomitant]
     Indication: BLOOD GLUCOSE ABNORMAL
     Route: 058
  18. CEFAZOLIN [Concomitant]
     Indication: PROPHYLAXIS
     Dosage: 1 G, ONCE
     Route: 042
  19. PREDNISONE [Concomitant]
     Indication: HIV TEST
     Dosage: 20 MG, BID
     Route: 048
  20. TOPROL-XL [Concomitant]
     Indication: CARDIAC DISORDER
     Dosage: 100 MG, QD
     Route: 048
  21. VIDEX EC [Concomitant]
     Indication: HIV TEST
     Dosage: 250 MG, QD
     Route: 048
  22. TRASYLOL [Suspect]
     Indication: PRODUCT USED FOR UNKNOWN INDICATION
     Route: 042
     Dates: start: 20050329

REACTIONS (10)
  - RENAL INJURY [None]
  - EMOTIONAL DISTRESS [None]
  - RENAL IMPAIRMENT [None]
  - RENAL FAILURE [None]
  - UNEVALUABLE EVENT [None]
  - INJURY [None]
  - FEAR [None]
  - PAIN [None]
  - ANXIETY [None]
  - STRESS [None]
